FAERS Safety Report 9851198 (Version 2)
Quarter: 2014Q1

REPORT INFORMATION
  Report Type: Spontaneous
  Country: JP (occurrence: JP)
  Receive Date: 20140128
  Receipt Date: 20140131
  Transmission Date: 20141002
  Serious: Yes (Hospitalization)
  Sender: FDA-Public Use
  Company Number: JP-TAKEDA-2014TJP000835

PATIENT
  Age: 77 Year
  Sex: Female

DRUGS (4)
  1. LANSAP 400 [Suspect]
     Indication: HELICOBACTER INFECTION
     Dosage: 0.5 DF, BID
     Route: 048
     Dates: start: 201311
  2. TAKEPRON INTRAVENOUS 30MG. [Suspect]
     Dosage: UNK
     Route: 050
  3. TAKEPRON OD TABLETS 15 [Suspect]
     Dosage: UNK
     Route: 048
  4. AMINOLEBAN /01982601/ [Suspect]
     Dosage: UNK
     Route: 050
     Dates: end: 20140124

REACTIONS (3)
  - Hypernatraemia [Recovered/Resolved]
  - Ketoacidosis [Recovered/Resolved]
  - Diabetes insipidus [Recovered/Resolved]
